FAERS Safety Report 6888869-2 (Version None)
Quarter: 2010Q3

REPORT INFORMATION
  Report Type: 
  Country: None (occurrence: None)
  Receive Date: 20100730
  Receipt Date: 20071107
  Transmission Date: 20110219
  Serious: No
  Sender: FDA-Public Use
  Company Number: US-PFIZER INC-2007094862

PATIENT
  Sex: Male
  Weight: 92.99 kg

DRUGS (4)
  1. LIPITOR [Suspect]
     Indication: BLOOD CHOLESTEROL
     Dates: start: 19980101
  2. NIASPAN [Concomitant]
  3. VERELAN PM [Concomitant]
  4. VALSARTAN [Concomitant]

REACTIONS (1)
  - INSOMNIA [None]
